FAERS Safety Report 8198457-6 (Version None)
Quarter: 2012Q1

REPORT INFORMATION
  Report Type: 
  Country: None (occurrence: None)
  Receive Date: 20120309
  Receipt Date: 20120306
  Transmission Date: 20120608
  Serious: Yes (Death)
  Sender: FDA-Public Use
  Company Number: PHHY2012CA013210

PATIENT
  Sex: Female

DRUGS (1)
  1. SANDOSTATIN LAR [Suspect]
     Indication: VASCULAR OCCLUSION
     Dosage: 20 MG, QMO
     Route: 030
     Dates: start: 20120210, end: 20120210

REACTIONS (2)
  - DEATH [None]
  - ABDOMINAL DISCOMFORT [None]
